FAERS Safety Report 7350944-6 (Version None)
Quarter: 2011Q1

REPORT INFORMATION
  Report Type: 
  Country: None (occurrence: None)
  Receive Date: 20110314
  Receipt Date: 20110311
  Transmission Date: 20110831
  Serious: No
  Sender: FDA-Public Use
  Company Number: US-PFIZER INC-2011054678

PATIENT
  Sex: Male
  Weight: 86.168 kg

DRUGS (4)
  1. ASPIRIN [Concomitant]
     Dosage: UNK
  2. FLOMAX [Concomitant]
     Dosage: UNK
  3. LYRICA [Suspect]
     Indication: PROPHYLACTIC CHEMOTHERAPY
     Dosage: 50 MG, 2X/DAY
     Route: 048
     Dates: start: 20110302, end: 20110306
  4. LISINOPRIL [Concomitant]
     Dosage: UNK

REACTIONS (2)
  - PARAESTHESIA [None]
  - HYPOAESTHESIA [None]
